FAERS Safety Report 16686339 (Version 1)
Quarter: 2019Q3

REPORT INFORMATION
  Report Type: Spontaneous
  Country: IT (occurrence: IT)
  Receive Date: 20190809
  Receipt Date: 20190809
  Transmission Date: 20191004
  Serious: Yes (Hospitalization)
  Sender: FDA-Public Use
  Company Number: IT-TEVA-2019-IT-1090318

PATIENT
  Age: 65 Year
  Sex: Male

DRUGS (2)
  1. COLCHICINA LIRCA 1 MG COMPRESSE [Suspect]
     Active Substance: COLCHICINE
     Indication: ARTHRALGIA
     Dosage: 1 DF
     Dates: start: 20190614, end: 20190621
  2. TICLOPIDINE [Suspect]
     Active Substance: TICLOPIDINE
     Indication: THROMBOSIS PROPHYLAXIS
     Dosage: 1 DF
     Dates: start: 20190101, end: 20190621

REACTIONS (4)
  - Gamma-glutamyltransferase increased [Recovering/Resolving]
  - Hypertransaminasaemia [Recovering/Resolving]
  - Diarrhoea [Recovering/Resolving]
  - Ocular icterus [Recovering/Resolving]

NARRATIVE: CASE EVENT DATE: 20190621
